FAERS Safety Report 5473270-9 (Version None)
Quarter: 2007Q3

REPORT INFORMATION
  Report Type: 
  Country: None (occurrence: None)
  Receive Date: 20070927
  Receipt Date: 20070917
  Transmission Date: 20080115
  Serious: Yes (Hospitalization)
  Sender: FDA-Public Use
  Company Number: US020212

PATIENT
  Age: 22 Year
  Sex: Female

DRUGS (2)
  1. MODIODAL [Suspect]
     Indication: HYPERSOMNIA
     Dosage: 100 MG QD ORAL
     Route: 048
     Dates: start: 20050101, end: 20070101
  2. COMBINED ORAL CONTRACEPTIVE [Concomitant]

REACTIONS (2)
  - MOTOR DYSFUNCTION [None]
  - NUCLEAR MAGNETIC RESONANCE IMAGING BRAIN ABNORMAL [None]
